FAERS Safety Report 9880264 (Version 4)
Quarter: 2014Q1

REPORT INFORMATION
  Report Type: Spontaneous
  Country: JP (occurrence: JP)
  Receive Date: 20140207
  Receipt Date: 20140313
  Transmission Date: 20141002
  Serious: Yes (Death, Life-Threatening, Hospitalization)
  Sender: FDA-Public Use
  Company Number: JP-BRISTOL-MYERS SQUIBB COMPANY-20122768

PATIENT
  Age: 84 Year
  Sex: Female
  Weight: 44 kg

DRUGS (3)
  1. ELIQUIS [Suspect]
     Indication: CEREBROVASCULAR ACCIDENT PROPHYLAXIS
     Route: 048
     Dates: start: 20130523, end: 20140107
  2. MAINTATE [Concomitant]
     Indication: ATRIAL FIBRILLATION
     Route: 048
     Dates: start: 20131126, end: 20140107
  3. SUNRYTHM [Concomitant]

REACTIONS (3)
  - Embolic stroke [Fatal]
  - Fall [Unknown]
  - Incorrect dose administered [Unknown]
